FAERS Safety Report 12450765 (Version 1)
Quarter: 2016Q2

REPORT INFORMATION
  Report Type: Spontaneous
  Country: US (occurrence: None)
  Receive Date: 20160608
  Receipt Date: 20160608
  Transmission Date: 20160815
  Serious: No
  Sender: FDA-Public Use
  Company Number: None

PATIENT
  Age: 43 Year
  Sex: Female
  Weight: 56.7 kg

DRUGS (2)
  1. DIFLUNISAL. [Concomitant]
     Active Substance: DIFLUNISAL
  2. GABAPENTIN, 300 MG [Suspect]
     Active Substance: GABAPENTIN
     Indication: NEUROPATHY PERIPHERAL
     Route: 048
     Dates: start: 20160605, end: 20160606

REACTIONS (3)
  - Vision blurred [None]
  - Skin disorder [None]
  - Eyelid ptosis [None]

NARRATIVE: CASE EVENT DATE: 20160607
